FAERS Safety Report 12289308 (Version 1)
Quarter: 2016Q2

REPORT INFORMATION
  Report Type: Spontaneous
  Country: CA (occurrence: CA)
  Receive Date: 20160421
  Receipt Date: 20160421
  Transmission Date: 20160815
  Serious: Yes (Life-Threatening, Disabling)
  Sender: FDA-Public Use
  Company Number: CA-ROCHE-1743000

PATIENT
  Age: 52 Year
  Sex: Female
  Weight: 72.64 kg

DRUGS (4)
  1. DIAZEPAM. [Suspect]
     Active Substance: DIAZEPAM
     Route: 065
  2. TRAZODONE [Concomitant]
     Active Substance: TRAZODONE HYDROCHLORIDE
     Route: 065
  3. DIAZEPAM. [Suspect]
     Active Substance: DIAZEPAM
     Indication: ANXIETY
     Route: 065
  4. DIAZEPAM. [Suspect]
     Active Substance: DIAZEPAM
     Route: 065

REACTIONS (12)
  - Decreased appetite [Unknown]
  - Fatigue [Unknown]
  - Hypersomnia [Unknown]
  - Lethargy [Unknown]
  - Suicidal ideation [Unknown]
  - Nausea [Unknown]
  - Palpitations [Unknown]
  - Withdrawal syndrome [Unknown]
  - Drug withdrawal headache [Unknown]
  - Anxiety [Unknown]
  - Vomiting [Unknown]
  - Abdominal pain [Unknown]
